FAERS Safety Report 4730277-4 (Version None)
Quarter: 2005Q3

REPORT INFORMATION
  Report Type: 
  Country: None (occurrence: None)
  Receive Date: 20050729
  Receipt Date: 20050726
  Transmission Date: 20060218
  Serious: Yes (Other)
  Sender: FDA-Public Use
  Company Number: 005293

PATIENT
  Sex: Female

DRUGS (6)
  1. MEDROXYPROGESTERONE ACETATE [Suspect]
     Dosage: ORAL
     Route: 048
     Dates: start: 19930528, end: 19990601
  2. AYGESTIN          (NORETHINDRONE ) [Suspect]
     Dosage: ORAL
     Route: 048
     Dates: start: 19930528, end: 19990601
  3. PREMARIN [Suspect]
     Dosage: ORAL
     Route: 048
     Dates: start: 19930528, end: 19990601
  4. PROVERA [Suspect]
     Dosage: ORAL
     Route: 048
     Dates: start: 19930528, end: 19990601
  5. CYCRIN [Suspect]
     Dosage: ORAL
     Route: 048
     Dates: start: 19930528, end: 19990601
  6. ESTRATEST [Suspect]
     Dosage: ORAL
     Route: 048
     Dates: start: 19930528, end: 19990601

REACTIONS (1)
  - BREAST CANCER [None]
